FAERS Safety Report 4263513-1 (Version None)
Quarter: 2004Q1

REPORT INFORMATION
  Report Type: 
  Country: None (occurrence: None)
  Receive Date: 20040105
  Receipt Date: 20031223
  Transmission Date: 20041129
  Serious: Yes (Hospitalization)
  Sender: FDA-Public Use
  Company Number: FR-BRISTOL-MYERS SQUIBB COMPANY-12467858

PATIENT
  Age: 5 Year
  Sex: Male

DRUGS (5)
  1. HOLOXAN [Suspect]
     Indication: RHABDOMYOSARCOMA
     Route: 042
     Dates: start: 20031101, end: 20031101
  2. DOXORUBICIN HCL [Suspect]
     Indication: RHABDOMYOSARCOMA
     Route: 042
     Dates: start: 20031101, end: 20031101
  3. VINCRISTINE [Concomitant]
     Indication: RHABDOMYOSARCOMA
     Route: 042
     Dates: start: 20031101, end: 20031101
  4. ETOPOPHOS [Concomitant]
     Indication: RHABDOMYOSARCOMA
     Route: 042
     Dates: start: 20031101, end: 20031101
  5. DACTINOMYCIN [Concomitant]

REACTIONS (1)
  - GLYCOSURIA [None]
